FAERS Safety Report 5796489-6 (Version None)
Quarter: 2008Q3

REPORT INFORMATION
  Report Type: 
  Country: None (occurrence: None)
  Receive Date: 20080701
  Receipt Date: 20080626
  Transmission Date: 20090109
  Serious: Yes (Hospitalization, Congenital Anomaly)
  Sender: FDA-Public Use
  Company Number: A0687218A

PATIENT
  Sex: Male

DRUGS (8)
  1. PAXIL [Suspect]
     Indication: DEPRESSION
     Dosage: 10MG PER DAY
     Dates: start: 20060701, end: 20070501
  2. VITAMIN TAB [Concomitant]
     Indication: PREGNANCY
     Dates: start: 20060501
  3. ALBUTEROL [Concomitant]
     Indication: ASTHMA
     Dates: start: 20061001
  4. METRONIDAZOLE HCL [Concomitant]
     Indication: VAGINITIS BACTERIAL
     Dates: start: 20061101
  5. CHERATUSSIN AC [Concomitant]
     Indication: SINUSITIS
     Dates: start: 20070101
  6. TYLENOL [Concomitant]
     Indication: PAIN
     Dates: start: 20061201
  7. AMOXICILLIN [Concomitant]
     Dates: start: 20070111
  8. KYTRIL [Concomitant]
     Dates: start: 20070201

REACTIONS (17)
  - APNOEIC ATTACK [None]
  - ATRIAL SEPTAL DEFECT [None]
  - CAESAREAN SECTION [None]
  - CARDIAC MURMUR [None]
  - CARDIOMEGALY [None]
  - CONGENITAL MITRAL VALVE INCOMPETENCE [None]
  - CONGENITAL MITRAL VALVE STENOSIS [None]
  - CYANOSIS [None]
  - DILATATION VENTRICULAR [None]
  - DRUG EXPOSURE DURING PREGNANCY [None]
  - FOETAL HYPOKINESIA [None]
  - HEART DISEASE CONGENITAL [None]
  - LEFT ATRIAL DILATATION [None]
  - MITRAL VALVE DISEASE [None]
  - MITRAL VALVE INCOMPETENCE [None]
  - MITRAL VALVE PROLAPSE [None]
  - TRICUSPID VALVE INCOMPETENCE [None]
